FAERS Safety Report 8475407-6 (Version None)
Quarter: 2012Q2

REPORT INFORMATION
  Report Type: 
  Country: None (occurrence: None)
  Receive Date: 20120621
  Receipt Date: 20120611
  Transmission Date: 20120825
  Serious: Yes (Hospitalization, Other)
  Sender: FDA-Public Use
  Company Number: 2012SP032456

PATIENT
  Age: 60 Year
  Sex: Male
  Weight: 64 kg

DRUGS (8)
  1. PEG-INTRON [Suspect]
     Indication: HEPATITIS C
     Dosage: 1.5 MCG/KG;QW;SC
     Route: 058
     Dates: start: 20120404, end: 20120522
  2. NORVASC [Concomitant]
  3. TELAVIC (ANTIVIRALS NOS) [Suspect]
     Indication: HEPATITIS C
     Dosage: 1500 MG;QD;PO
     Route: 048
     Dates: start: 20120404, end: 20120522
  4. RABEPRAZOLE SODIUM [Concomitant]
  5. ALLOPURINOL [Concomitant]
  6. LOXONIN (LOXOPROFEN) [Suspect]
     Indication: PRODUCT USED FOR UNKNOWN INDICATION
     Dosage: ;UNK;PO
     Route: 048
  7. MIGLITOL [Concomitant]
  8. REBETOL [Suspect]
     Indication: HEPATITIS C
     Dosage: 600 MG;QD;PO
     Route: 048
     Dates: start: 20120404, end: 20120522

REACTIONS (9)
  - INCORRECT DOSE ADMINISTERED [None]
  - HAEMOGLOBIN DECREASED [None]
  - BLOOD CREATININE INCREASED [None]
  - SMALL INTESTINAL HAEMORRHAGE [None]
  - PLATELET COUNT DECREASED [None]
  - DIABETES MELLITUS [None]
  - CONDITION AGGRAVATED [None]
  - HYPERURICAEMIA [None]
  - WHITE BLOOD CELL COUNT DECREASED [None]
